FAERS Safety Report 7194360-9 (Version None)
Quarter: 2010Q4

REPORT INFORMATION
  Report Type: 
  Country: None (occurrence: None)
  Receive Date: 20101223
  Receipt Date: 20101216
  Transmission Date: 20110411
  Serious: Yes (Hospitalization)
  Sender: FDA-Public Use
  Company Number: IT-ASTRAZENECA-2010SE59620

PATIENT
  Sex: Male

DRUGS (11)
  1. MERREM [Suspect]
     Indication: KLEBSIELLA INFECTION
     Route: 042
     Dates: start: 20101206, end: 20101213
  2. GENTALYN [Concomitant]
  3. FOLINA [Concomitant]
  4. SPIRIVA [Concomitant]
  5. TAPAZOLE [Concomitant]
  6. ENTEROGERMINA [Concomitant]
  7. CLEXANE [Concomitant]
  8. POLARAMINE [Concomitant]
  9. TAVOR [Concomitant]
  10. TRINIPLAS [Concomitant]
  11. ALBUMINE BAXTER [Concomitant]

REACTIONS (1)
  - LIVER DISORDER [None]
